FAERS Safety Report 5885954-9 (Version None)
Quarter: 2008Q3

REPORT INFORMATION
  Report Type: 
  Country: None (occurrence: None)
  Receive Date: 20080917
  Receipt Date: 20080909
  Transmission Date: 20090109
  Serious: Yes (Hospitalization)
  Sender: FDA-Public Use
  Company Number: US-KINGPHARMUSA00001-K200801052

PATIENT

DRUGS (10)
  1. INTAL [Suspect]
  2. URSO                               /00465701/ [Suspect]
  3. MUCODYNE [Suspect]
  4. ASPIRIN [Suspect]
  5. RENIVEZE [Suspect]
  6. CLARITIN                           /00917501/ [Suspect]
  7. SINGULAIR [Suspect]
  8. PULMICORT-100 [Suspect]
  9. AMLODIPINE BESYLATE [Suspect]
  10. MOHRUS [Suspect]

REACTIONS (1)
  - VASCULITIS [None]
